FAERS Safety Report 15886400 (Version 1)
Quarter: 2019Q1

REPORT INFORMATION
  Report Type: Spontaneous
  Country: US (occurrence: US)
  Receive Date: 20190129
  Receipt Date: 20190129
  Transmission Date: 20190417
  Serious: Yes (Other)
  Sender: FDA-Public Use
  Company Number: PHEH2019US003945

PATIENT
  Age: 42 Year
  Sex: Male

DRUGS (4)
  1. TRAMETINIB [Suspect]
     Active Substance: TRAMETINIB
     Dosage: UNK, REDUCED DOSE
  2. DABRAFENIB [Suspect]
     Active Substance: DABRAFENIB
     Dosage: UNK, REDUCED DOSE
  3. DABRAFENIB [Suspect]
     Active Substance: DABRAFENIB
     Indication: METASTATIC MALIGNANT MELANOMA
     Dosage: 150 MG, BID
     Route: 048
  4. TRAMETINIB [Suspect]
     Active Substance: TRAMETINIB
     Indication: METASTATIC MALIGNANT MELANOMA
     Route: 048

REACTIONS (2)
  - Ocular toxicity [Recovered/Resolved]
  - Photophobia [Recovered/Resolved]
